FAERS Safety Report 12718222 (Version 1)
Quarter: 2016Q3

REPORT INFORMATION
  Report Type: Spontaneous
  Country: US (occurrence: US)
  Receive Date: 20160906
  Receipt Date: 20160906
  Transmission Date: 20161109
  Serious: No
  Sender: FDA-Public Use
  Company Number: US-ASTRAZENECA-2016SE59198

PATIENT
  Sex: Female
  Weight: 72.6 kg

DRUGS (6)
  1. RHINOCORT AQUA [Suspect]
     Active Substance: BUDESONIDE
     Indication: MULTIPLE ALLERGIES
     Dosage: UNKNOWN, AS REQUIRED
     Route: 045
  2. ZYRTEC [Concomitant]
     Active Substance: CETIRIZINE HYDROCHLORIDE
     Indication: HYPERSENSITIVITY
     Dosage: AS NEEDED
  3. BENADRYL [Concomitant]
     Active Substance: DIPHENHYDRAMINE HYDROCHLORIDE
     Indication: HYPERSENSITIVITY
     Dosage: AS NEEDED
  4. RHINOCORT AQUA [Suspect]
     Active Substance: BUDESONIDE
     Indication: MULTIPLE ALLERGIES
     Dosage: 1 SPRAY EACH NOSTRIL DAILY
     Route: 045
  5. RHINOCORT AQUA [Suspect]
     Active Substance: BUDESONIDE
     Indication: MULTIPLE ALLERGIES
     Dosage: 3 SPRAYS EACH NOSTRIL, UNKNOWN
     Route: 045
  6. RHINOCORT AQUA [Suspect]
     Active Substance: BUDESONIDE
     Indication: MULTIPLE ALLERGIES
     Dosage: 1 SPRAY ON ONE NOSE ALTERNATING IT EVERY OTHER DAY
     Route: 045

REACTIONS (7)
  - Tremor [Unknown]
  - Insomnia [Unknown]
  - Cataract [Unknown]
  - Sensitisation [Unknown]
  - Food craving [Unknown]
  - Eye disorder [Unknown]
  - Intentional product misuse [Unknown]
